FAERS Safety Report 16657652 (Version 4)
Quarter: 2019Q4

REPORT INFORMATION
  Report Type: Report from Study
  Country: US (occurrence: US)
  Receive Date: 20190801
  Receipt Date: 20191223
  Transmission Date: 20200122
  Serious: Yes (Other)
  Sender: FDA-Public Use
  Company Number: US-PFIZER INC-2019214597

PATIENT
  Age: 47 Year
  Sex: Female

DRUGS (4)
  1. IBRANCE [Suspect]
     Active Substance: PALBOCICLIB
     Dosage: 75 MG, CYCLIC (21 DAYS OF A 28 DAY CYCLE)
     Route: 048
     Dates: start: 20191007
  2. IBRANCE [Suspect]
     Active Substance: PALBOCICLIB
     Indication: BREAST CANCER FEMALE
     Dosage: 125 MG, CYCLIC (DAILY/21 DAYS ON/7 DAYS OFF)
     Route: 048
     Dates: start: 20190514, end: 201908
  3. IBRANCE [Suspect]
     Active Substance: PALBOCICLIB
     Dosage: 100 MG, CYCLIC (DAILY 21 DAYS ON/7 DAYS OFF)
     Route: 048
     Dates: start: 201908, end: 201909
  4. FASLODEX [Concomitant]
     Active Substance: FULVESTRANT
     Dosage: UNK

REACTIONS (17)
  - Nausea [Recovered/Resolved]
  - Weight decreased [Unknown]
  - Diarrhoea [Recovered/Resolved]
  - White blood cell count decreased [Recovering/Resolving]
  - Ocular discomfort [Unknown]
  - Eye infection [Unknown]
  - Decreased appetite [Recovering/Resolving]
  - Infected bite [Unknown]
  - Appetite disorder [Unknown]
  - Gastroenteritis viral [Unknown]
  - Hot flush [Recovered/Resolved]
  - Hepatic steatosis [Unknown]
  - Dry mouth [Unknown]
  - Intentional product misuse [Unknown]
  - Fatigue [Recovering/Resolving]
  - Headache [Recovered/Resolved]
  - Stomatitis [Recovered/Resolved]

NARRATIVE: CASE EVENT DATE: 2019
